FAERS Safety Report 15452035 (Version 1)
Quarter: 2018Q4

REPORT INFORMATION
  Report Type: Spontaneous
  Country: DE (occurrence: DE)
  Receive Date: 20181001
  Receipt Date: 20181001
  Transmission Date: 20190204
  Serious: Yes (Other)
  Sender: FDA-Public Use
  Company Number: DE-COLLEGIUM PHARMACEUTICAL, INC.-DE-2018COL014244

PATIENT
  Sex: Female

DRUGS (1)
  1. TAPENTADOL EXTENDED RELEASE [Suspect]
     Active Substance: TAPENTADOL
     Indication: PAIN
     Dosage: 100 MG, BID
     Route: 048
     Dates: start: 201809

REACTIONS (2)
  - Restlessness [Recovered/Resolved]
  - Delusion [Recovered/Resolved]
